FAERS Safety Report 23897766 (Version 6)
Quarter: 2024Q4

REPORT INFORMATION
  Report Type: Spontaneous
  Country: US (occurrence: US)
  Receive Date: 20240524
  Receipt Date: 20241029
  Transmission Date: 20250115
  Serious: No
  Sender: CALLIDITAS THERAPEUTICS AB
  Company Number: US-Calliditas-2024CAL00771

PATIENT
  Age: 39 Year
  Sex: Female
  Weight: 74.8 kg

DRUGS (3)
  1. TARPEYO [Suspect]
     Active Substance: BUDESONIDE
     Indication: IgA nephropathy
     Route: 048
     Dates: start: 20240406
  2. RAMIPRIL [Suspect]
     Active Substance: RAMIPRIL
     Indication: Proteinuria
  3. IMURAN [Suspect]
     Active Substance: AZATHIOPRINE
     Indication: Proteinuria

REACTIONS (22)
  - Product dose omission issue [Unknown]
  - Fatigue [Unknown]
  - Nausea [Unknown]
  - Constipation [Recovering/Resolving]
  - Hirsutism [Unknown]
  - Cushingoid [Unknown]
  - Weight increased [Unknown]
  - Peripheral swelling [Not Recovered/Not Resolved]
  - Product residue present [Not Recovered/Not Resolved]
  - Dizziness [Unknown]
  - Cognitive disorder [Unknown]
  - Feeling abnormal [Unknown]
  - Hot flush [Recovered/Resolved]
  - Vasculitis [Not Recovered/Not Resolved]
  - Proteinuria [Not Recovered/Not Resolved]
  - Diarrhoea [Recovering/Resolving]
  - COVID-19 [Recovered/Resolved]
  - Wound [Recovered/Resolved]
  - Diabetic neuropathy [Unknown]
  - Blood disorder [Not Recovered/Not Resolved]
  - Vomiting [Recovering/Resolving]
  - Hepatic enzyme increased [Recovering/Resolving]
